FAERS Safety Report 16431638 (Version 1)
Quarter: 2019Q2

REPORT INFORMATION
  Report Type: Spontaneous
  Country: US (occurrence: US)
  Receive Date: 20190614
  Receipt Date: 20190614
  Transmission Date: 20190711
  Serious: Yes (Other)
  Sender: FDA-Public Use
  Company Number: US-PFIZER INC-2019250252

PATIENT
  Sex: Male
  Weight: 88.45 kg

DRUGS (1)
  1. VIAGRA [Suspect]
     Active Substance: SILDENAFIL CITRATE
     Dosage: 50 MG, ONCE A DAY
     Route: 048

REACTIONS (3)
  - Poor quality product administered [Unknown]
  - Erection increased [Unknown]
  - Penile pain [Unknown]
